FAERS Safety Report 5385456-2 (Version None)
Quarter: 2007Q3

REPORT INFORMATION
  Report Type: 
  Country: None (occurrence: None)
  Receive Date: 20070709
  Receipt Date: 20070709
  Transmission Date: 20080115
  Serious: Yes (Other)
  Sender: FDA-Public Use
  Company Number: None

PATIENT
  Sex: Female
  Weight: 60.782 kg

DRUGS (2)
  1. SYNTHROID [Suspect]
     Indication: HYPOTHYROIDISM
     Dosage: TAKE 1 TABLET BY MOUTH DAILY ONCE A DAY PO
     Route: 048
     Dates: start: 20070306, end: 20070610
  2. SYNTHROID [Suspect]
     Indication: HYPOTHYROIDISM
     Dosage: TAKE 1 TABLET BY MOUTH DAILY ONCE A DAY PO
     Route: 048
     Dates: start: 20070611, end: 20070625

REACTIONS (2)
  - PHARMACEUTICAL PRODUCT COMPLAINT [None]
  - THYROID FUNCTION TEST ABNORMAL [None]
